FAERS Safety Report 4654767-8 (Version None)
Quarter: 2005Q2

REPORT INFORMATION
  Report Type: 
  Country: None (occurrence: None)
  Receive Date: 20050504
  Receipt Date: 20050420
  Transmission Date: 20051028
  Serious: Yes (Hospitalization)
  Sender: FDA-Public Use
  Company Number: 2002096195FR

PATIENT
  Age: 85 Year
  Sex: Female

DRUGS (7)
  1. ALPRAZOLAM [Suspect]
     Indication: ILL-DEFINED DISORDER
     Dosage: ORAL
     Route: 048
     Dates: end: 20011203
  2. KORETIC (GEZOR) (HYDROCHLOROTHIAZIDE, QUINAPRIL) [Suspect]
     Indication: ESSENTIAL HYPERTENSION
     Dosage: ORAL
     Route: 048
     Dates: end: 20011203
  3. ZOLPIDEM TARTRATE [Suspect]
     Indication: ILL-DEFINED DISORDER
     Dosage: 10 MG (1 IN 1 D) ORAL
     Route: 048
     Dates: end: 20011206
  4. TIANEPTINE (TIANEPTINE) [Suspect]
     Indication: DEPRESSION
     Dosage: 12.5 MG (2 IN 1 D) ORAL
     Route: 048
     Dates: end: 20011206
  5. VENLAFAXINE HCL [Suspect]
     Indication: DEPRESSION
     Dosage: 25 MG (2 IN 1 D) ORAL
     Route: 048
     Dates: end: 20011206
  6. ACETYLSALICYLATE LYSINE [Concomitant]
  7. PLASMA SUBSTITUTES AND PERFUSION SOLUTIONS [Concomitant]

REACTIONS (4)
  - ASTHENIA [None]
  - FALL [None]
  - HYPONATRAEMIA [None]
  - SOMNOLENCE [None]
